FAERS Safety Report 11052438 (Version 2)
Quarter: 2015Q2

REPORT INFORMATION
  Report Type: Spontaneous
  Country: JP (occurrence: None)
  Receive Date: 20150417
  Receipt Date: 20150429
  Transmission Date: 20150821
  Serious: Yes (Hospitalization)
  Sender: FDA-Public Use
  Company Number: 2015FE01147

PATIENT
  Age: 36 Year
  Sex: Female
  Weight: 47 kg

DRUGS (1)
  1. LUTINUS (PROGESTERONE) VAGINAL TABLET, 100MG [Suspect]
     Active Substance: PROGESTERONE
     Indication: PROPHYLAXIS OF ABORTION
     Dosage: 50 MG, ONCE/SINGLE
     Dates: start: 20150404

REACTIONS (3)
  - Cervix haemorrhage uterine [None]
  - Cervical polyp [None]
  - Maternal exposure during pregnancy [None]

NARRATIVE: CASE EVENT DATE: 20150404
